FAERS Safety Report 8365312-8 (Version None)
Quarter: 2012Q2

REPORT INFORMATION
  Report Type: 
  Country: None (occurrence: None)
  Receive Date: 20120515
  Receipt Date: 20120511
  Transmission Date: 20120825
  Serious: Yes (Hospitalization, Other)
  Sender: FDA-Public Use
  Company Number: ADR-2012-00337

PATIENT
  Sex: Male

DRUGS (2)
  1. LIORESAL [Suspect]
     Dosage: SEE B5
  2. IBUPROFEN (ADVIL) [Concomitant]

REACTIONS (5)
  - WOUND COMPLICATION [None]
  - STAPHYLOCOCCAL INFECTION [None]
  - HYPERTONIA [None]
  - INFECTION [None]
  - STAPHYLOCOCCUS TEST POSITIVE [None]
